FAERS Safety Report 15346291 (Version 1)
Quarter: 2018Q3

REPORT INFORMATION
  Report Type: Spontaneous
  Country: US (occurrence: US)
  Receive Date: 20180828
  Receipt Date: 20180828
  Transmission Date: 20181010
  Serious: No
  Sender: FDA-Public Use
  Company Number: None

PATIENT
  Sex: Male

DRUGS (1)
  1. REPATHA [Suspect]
     Active Substance: EVOLOCUMAB
     Dosage: UNREADABLE??420MG ONCE MONTHLY
     Route: 058
     Dates: start: 20180619

REACTIONS (2)
  - Constipation [None]
  - Depression [None]
